FAERS Safety Report 4797138-6 (Version None)
Quarter: 2005Q4

REPORT INFORMATION
  Report Type: 
  Country: None (occurrence: None)
  Receive Date: 20051013
  Receipt Date: 20051003
  Transmission Date: 20060501
  Serious: Yes (Other)
  Sender: FDA-Public Use
  Company Number: US-MERCK-0510USA02555

PATIENT
  Age: 56 Year
  Sex: Male
  Weight: 77 kg

DRUGS (34)
  1. VIOXX [Suspect]
     Route: 048
     Dates: start: 20010707, end: 20030130
  2. GUAIFENESIN DM [Concomitant]
     Route: 065
  3. NORVASC [Concomitant]
     Route: 065
  4. PROSCAR [Concomitant]
     Route: 065
  5. PROCHLORPERAZINE [Concomitant]
     Route: 065
  6. FLURAZEPAM [Concomitant]
     Route: 065
  7. PREVACID [Concomitant]
     Route: 065
  8. CORTISONE (CORTISONE ACETATE) [Concomitant]
     Route: 065
  9. HYDROCODONE BITARTRATE + ACETAMINOPHEN [Concomitant]
     Route: 065
  10. PROZAC [Concomitant]
     Route: 065
  11. DOXAZOSIN MESYLATE [Concomitant]
     Route: 065
  12. LIPITOR [Concomitant]
     Route: 065
  13. CEFACLOR [Concomitant]
     Route: 065
  14. CLARITIN-D [Concomitant]
     Route: 065
  15. [THERAPY UNSPECIFIED] [Concomitant]
     Route: 065
  16. [THERAPY UNSPECIFIED] [Concomitant]
     Route: 065
  17. FAMVIR [Concomitant]
     Route: 065
  18. AVELOX [Concomitant]
     Route: 065
  19. DRITUSS GP [Concomitant]
     Route: 065
  20. URSODIOL [Concomitant]
     Route: 065
  21. BIAXIN XL [Concomitant]
     Route: 065
  22. PHENYLEPHRINE [Concomitant]
     Route: 065
  23. [THERAPY UNSPECIFIED] [Concomitant]
     Route: 065
  24. [THERAPY UNSPECIFIED] [Concomitant]
     Route: 065
  25. METROCREAM [Concomitant]
     Route: 065
  26. AMBIEN [Concomitant]
     Route: 065
  27. [THERAPY UNSPECIFIED] [Concomitant]
     Route: 065
  28. [THERAPY UNSPECIFIED] [Concomitant]
     Route: 065
  29. [THERAPY UNSPECIFIED] [Concomitant]
     Route: 065
  30. VIAGRA [Concomitant]
     Route: 065
  31. ZOCOR [Concomitant]
     Route: 065
  32. ACIPHEX [Concomitant]
     Route: 065
  33. EFFEXOR [Concomitant]
     Route: 065
  34. NEXIUM [Concomitant]
     Route: 065

REACTIONS (2)
  - CEREBROVASCULAR ACCIDENT [None]
  - DEPRESSION [None]
